FAERS Safety Report 5154828-3 (Version None)
Quarter: 2006Q4

REPORT INFORMATION
  Report Type: 
  Country: None (occurrence: None)
  Receive Date: 20061121
  Receipt Date: 20061115
  Transmission Date: 20070319
  Serious: Yes (Life-Threatening)
  Sender: FDA-Public Use
  Company Number: US-JNJFOC-20061103970

PATIENT
  Sex: Female

DRUGS (2)
  1. ARESTIN [Suspect]
     Indication: PERIODONTITIS
  2. CIPROFLOXACIN [Interacting]
     Indication: DRUG USE FOR UNKNOWN INDICATION

REACTIONS (3)
  - ADVERSE EVENT [None]
  - DRUG INTERACTION [None]
  - UNEVALUABLE EVENT [None]
